FAERS Safety Report 7994401-2 (Version None)
Quarter: 2011Q4

REPORT INFORMATION
  Report Type: 
  Country: None (occurrence: None)
  Receive Date: 20111220
  Receipt Date: 20111212
  Transmission Date: 20120403
  Serious: Yes (Other)
  Sender: FDA-Public Use
  Company Number: US-ASTELLAS-2011US008396

PATIENT
  Sex: Male
  Weight: 56 kg

DRUGS (1)
  1. MYCAMINE [Suspect]
     Indication: CANDIDIASIS
     Dosage: 100 MG, UNKNOWN/D
     Route: 050
     Dates: start: 20110929, end: 20111125

REACTIONS (1)
  - BONE MARROW TRANSPLANT [None]
